FAERS Safety Report 5488044-2 (Version None)
Quarter: 2007Q4

REPORT INFORMATION
  Report Type: 
  Country: None (occurrence: None)
  Receive Date: 20071017
  Receipt Date: 20071010
  Transmission Date: 20080405
  Serious: Yes (Death)
  Sender: FDA-Public Use
  Company Number: AU-BAYER-200716009GDS

PATIENT
  Age: 69 Year
  Sex: Female
  Weight: 65 kg

DRUGS (5)
  1. TRASYLOL [Suspect]
     Indication: AORTIC ANEURYSM
     Route: 065
  2. TRASYLOL [Suspect]
     Route: 065
  3. TRASYLOL [Suspect]
     Route: 065
  4. PROTAMINE SULFATE [Suspect]
     Indication: HEPARIN NEUTRALISATION THERAPY
  5. HEPARIN [Suspect]
     Indication: THROMBOSIS PROPHYLAXIS

REACTIONS (1)
  - PULMONARY THROMBOSIS [None]
